FAERS Safety Report 6290745-3 (Version None)
Quarter: 2009Q3

REPORT INFORMATION
  Report Type: 
  Country: None (occurrence: None)
  Receive Date: 20090730
  Receipt Date: 20090722
  Transmission Date: 20100115
  Serious: Yes (Hospitalization, Other)
  Sender: FDA-Public Use
  Company Number: PHHY2009IN30319

PATIENT
  Age: 48 Year
  Sex: Female

DRUGS (8)
  1. CYCLOSPORINE [Suspect]
     Indication: RENAL TRANSPLANT
     Dosage: UNK
     Dates: start: 20050101
  2. AZATHIOPRINE [Suspect]
     Indication: RENAL TRANSPLANT
     Dosage: UNK
     Dates: start: 20050101
  3. HEPARIN [Concomitant]
     Indication: THROMBOSIS PROPHYLAXIS
  4. MYCOPHENOLATE MOFETIL [Concomitant]
     Indication: RENAL TRANSPLANT
     Dosage: 750 MG, BID
  5. METHYLPREDNISOLONE [Concomitant]
     Indication: IMMUNOSUPPRESSION
     Dosage: UNK
  6. METHYLPREDNISOLONE [Concomitant]
     Dosage: 10 MG/DAY
  7. ACITROM [Concomitant]
     Dosage: 3 MG AND 4 MG ON ALTERNATING DAYS
  8. CEPHALEXIN [Concomitant]
     Indication: PROPHYLAXIS URINARY TRACT INFECTION

REACTIONS (10)
  - ABDOMINAL PAIN [None]
  - DIABETES MELLITUS [None]
  - HAEMOLYTIC URAEMIC SYNDROME [None]
  - RENAL IMPAIRMENT [None]
  - THROMBOCYTOPENIA [None]
  - THROMBOTIC MICROANGIOPATHY [None]
  - TRANSAMINASES INCREASED [None]
  - URINARY TRACT INFECTION [None]
  - URINE OUTPUT DECREASED [None]
  - VESICOURETERIC REFLUX [None]
